FAERS Safety Report 7259027-7 (Version None)
Quarter: 2011Q1

REPORT INFORMATION
  Report Type: 
  Country: None (occurrence: None)
  Receive Date: 20110129
  Receipt Date: 20100623
  Transmission Date: 20110831
  Serious: No
  Sender: FDA-Public Use
  Company Number: US-ABBOTT-10P-163-0653216-00

PATIENT
  Age: 37 Year
  Sex: Female

DRUGS (10)
  1. PHENERGAN [Concomitant]
     Indication: NAUSEA
  2. HUMIRA [Suspect]
     Dosage: 80 MG LOADING DOSE
     Dates: start: 20100701, end: 20100701
  3. HUMIRA [Suspect]
  4. HYDROCODONE [Concomitant]
     Indication: PAIN
  5. DIAZEPAM [Concomitant]
     Indication: STRESS
  6. CHOLESTYRAMINE [Concomitant]
     Indication: CROHN'S DISEASE
     Route: 048
  7. HUMIRA [Suspect]
     Indication: CROHN'S DISEASE
     Dosage: 160 MG LOADING DOSE
     Dates: start: 20100617, end: 20100617
  8. AZATHIOPRINE [Concomitant]
     Indication: CROHN'S DISEASE
  9. DICYCLOMINE [Concomitant]
     Indication: CROHN'S DISEASE
     Dosage: 1 IN 1 D AS NEEDED
  10. NAPROSYN [Concomitant]
     Indication: HEADACHE

REACTIONS (5)
  - MOOD SWINGS [None]
  - NAUSEA [None]
  - NODULE [None]
  - RETCHING [None]
  - PAIN IN EXTREMITY [None]
